FAERS Safety Report 17760158 (Version 1)
Quarter: 2020Q2

REPORT INFORMATION
  Report Type: Spontaneous
  Country: US (occurrence: US)
  Receive Date: 20200508
  Receipt Date: 20200508
  Transmission Date: 20200714
  Serious: No
  Sender: FDA-Public Use
  Company Number: None

PATIENT
  Age: 63 Year
  Sex: Female

DRUGS (5)
  1. IBUPROFEN. [Concomitant]
     Active Substance: IBUPROFEN
  2. SOLU-MEDROL [Suspect]
     Active Substance: METHYLPREDNISOLONE SODIUM SUCCINATE
     Indication: PROPHYLAXIS
     Dates: start: 20200422, end: 20200506
  3. VITAMIN D [Concomitant]
     Active Substance: VITAMIN D NOS
  4. TRILEPTAL [Concomitant]
     Active Substance: OXCARBAZEPINE
  5. KEPPRA [Concomitant]
     Active Substance: LEVETIRACETAM

REACTIONS (8)
  - Nausea [None]
  - Hypersensitivity [None]
  - Pruritus [None]
  - Eye pruritus [None]
  - Infusion related reaction [None]
  - Lip pruritus [None]
  - Eustachian tube disorder [None]
  - Throat irritation [None]

NARRATIVE: CASE EVENT DATE: 20200422
